FAERS Safety Report 9916753 (Version 1)
Quarter: 2014Q1

REPORT INFORMATION
  Report Type: Spontaneous
  Country: US (occurrence: US)
  Receive Date: 20140221
  Receipt Date: 20140221
  Transmission Date: 20141002
  Serious: No
  Sender: FDA-Public Use
  Company Number: US-TEVA-464207USA

PATIENT
  Age: 33 Year
  Sex: Female
  Weight: 77.18 kg

DRUGS (2)
  1. PARAGARD 380A [Suspect]
     Indication: POST COITAL CONTRACEPTION
     Route: 015
     Dates: start: 201202, end: 201308
  2. PARAGARD 380A [Suspect]
     Route: 015
     Dates: start: 201311

REACTIONS (5)
  - Back pain [Recovered/Resolved]
  - Vaginal haemorrhage [Recovered/Resolved]
  - Device expulsion [Recovered/Resolved]
  - Menorrhagia [Not Recovered/Not Resolved]
  - Dysmenorrhoea [Not Recovered/Not Resolved]
